FAERS Safety Report 8511317-3 (Version None)
Quarter: 2012Q3

REPORT INFORMATION
  Report Type: 
  Country: None (occurrence: None)
  Receive Date: 20120716
  Receipt Date: 20120711
  Transmission Date: 20120928
  Serious: Yes (Other)
  Sender: FDA-Public Use
  Company Number: US-JNJFOC-20120513246

PATIENT
  Sex: Female
  Weight: 91.6 kg

DRUGS (3)
  1. DIPHENHYDRAMINE HCL [Concomitant]
     Indication: PREMEDICATION
     Route: 048
     Dates: start: 20100708
  2. INFLIXIMAB, RECOMBINANT [Suspect]
     Indication: RHEUMATOID ARTHRITIS
     Route: 042
     Dates: start: 20100820, end: 20100820
  3. HYDROCORTISONE [Concomitant]
     Indication: PREMEDICATION
     Route: 042
     Dates: start: 20100820

REACTIONS (5)
  - PALPITATIONS [None]
  - TREMOR [None]
  - HOT FLUSH [None]
  - RASH [None]
  - INFUSION RELATED REACTION [None]
